FAERS Safety Report 10519554 (Version 3)
Quarter: 2014Q4

REPORT INFORMATION
  Report Type: Report from Study
  Country: US (occurrence: US)
  Receive Date: 20141015
  Receipt Date: 20141115
  Transmission Date: 20150528
  Serious: Yes (Disabling)
  Sender: FDA-Public Use
  Company Number: US-SA-2014SA126980

PATIENT
  Sex: Male

DRUGS (1)
  1. AUBAGIO [Suspect]
     Active Substance: TERIFLUNOMIDE
     Indication: MULTIPLE SCLEROSIS
     Route: 048
     Dates: start: 20130927

REACTIONS (5)
  - Drug dose omission [Unknown]
  - Dizziness [Unknown]
  - Speech disorder [Unknown]
  - Choking sensation [Unknown]
  - Memory impairment [Unknown]
